FAERS Safety Report 11261161 (Version 1)
Quarter: 2015Q3

REPORT INFORMATION
  Report Type: Spontaneous
  Country: US (occurrence: US)
  Receive Date: 20150710
  Receipt Date: 20150710
  Transmission Date: 20151125
  Serious: Yes (Other)
  Sender: FDA-Public Use
  Company Number: US-MUNDIPHARMA DS AND PHARMACOVIGILANCE-USA-2015-0120885

PATIENT
  Sex: Male

DRUGS (7)
  1. LORTAB [Concomitant]
     Active Substance: ACETAMINOPHEN\HYDROCODONE BITARTRATE
     Indication: PRODUCT USED FOR UNKNOWN INDICATION
     Route: 048
  2. NORCO [Concomitant]
     Active Substance: ACETAMINOPHEN\HYDROCODONE BITARTRATE
     Indication: ANALGESIC THERAPY
     Dosage: 5 MG, UNK
     Route: 048
     Dates: start: 201501
  3. BUTRANS [Suspect]
     Active Substance: BUPRENORPHINE
     Indication: ANALGESIC THERAPY
     Dosage: 10 MCG/HR, WEEKLY
     Route: 062
  4. BUTRANS [Suspect]
     Active Substance: BUPRENORPHINE
     Indication: PAIN IN EXTREMITY
  5. METHADONE [Suspect]
     Active Substance: METHADONE HYDROCHLORIDE
     Indication: PRODUCT USED FOR UNKNOWN INDICATION
     Route: 048
  6. BUTRANS [Suspect]
     Active Substance: BUPRENORPHINE
     Indication: BACK PAIN
  7. BUTRANS [Suspect]
     Active Substance: BUPRENORPHINE
     Indication: ARTHRITIS
     Dosage: 5 MCG/HR X2 , WEEKLY
     Route: 062
     Dates: start: 20150205

REACTIONS (4)
  - Substance abuse [Unknown]
  - Arthritis [Unknown]
  - Drug ineffective [Unknown]
  - Intentional product use issue [Unknown]
